FAERS Safety Report 24313339 (Version 4)
Quarter: 2024Q4

REPORT INFORMATION
  Report Type: Spontaneous
  Country: TN (occurrence: TN)
  Receive Date: 20240912
  Receipt Date: 20241004
  Transmission Date: 20250115
  Serious: Yes (Hospitalization, Other)
  Sender: Vantive US Healthcare
  Company Number: FR-VANTIVE-2024VAN019517

PATIENT
  Age: 33 Year
  Sex: Female
  Weight: 55 kg

DRUGS (3)
  1. CALCIUM CHLORIDE\ICODEXTRIN\MAGNESIUM CHLORIDE\SODIUM CHLORIDE\SODIUM [Suspect]
     Active Substance: CALCIUM CHLORIDE\ICODEXTRIN\MAGNESIUM CHLORIDE\SODIUM CHLORIDE\SODIUM LACTATE
     Dosage: 300 ML FOR 12 HOURS (2L)
     Route: 033
     Dates: start: 202112, end: 202408
  2. CEFIXIME [Concomitant]
     Active Substance: CEFIXIME
     Indication: C-reactive protein abnormal
     Dosage: 2 TABLETS
     Route: 065
     Dates: start: 20240816, end: 20240828
  3. CIPRO [Concomitant]
     Active Substance: CIPROFLOXACIN HYDROCHLORIDE
     Indication: C-reactive protein abnormal
     Dosage: 1 TABLET
     Route: 065
     Dates: start: 20240816, end: 20240828

REACTIONS (12)
  - Anuria [Unknown]
  - Peritonitis [Recovered/Resolved]
  - Peritonitis [Recovered/Resolved]
  - Peritonitis bacterial [Recovered/Resolved]
  - Vascular access complication [Unknown]
  - Fistula [Recovered/Resolved]
  - Fistula [Unknown]
  - Inadequate peritoneal dialysis [Unknown]
  - Peritoneal dialysis complication [Unknown]
  - Drug intolerance [Unknown]
  - Localised oedema [Unknown]
  - Device related infection [Not Recovered/Not Resolved]
